FAERS Safety Report 22225796 (Version 3)
Quarter: 2024Q2

REPORT INFORMATION
  Report Type: Spontaneous
  Country: FR (occurrence: FR)
  Receive Date: 20230418
  Receipt Date: 20240619
  Transmission Date: 20240716
  Serious: Yes (Hospitalization, Other)
  Sender: FDA-Public Use
  Company Number: FR-CELLTRION INC.-2023FR004737

PATIENT

DRUGS (12)
  1. RITUXIMAB [Suspect]
     Active Substance: RITUXIMAB
     Indication: B-cell lymphoma
     Dosage: 700 MG 1 TOTAL (DOSAGE TEXT: 700 MG, 1X)
     Route: 042
     Dates: start: 20220719, end: 20220719
  2. CYCLOPHOSPHAMIDE [Suspect]
     Active Substance: CYCLOPHOSPHAMIDE
     Indication: B-cell lymphoma
     Dosage: 140 MG 1 TOTAL (DOSAGE TEXT: 140 MG, 1X)
     Route: 042
     Dates: start: 20220718, end: 20220718
  3. VINCRISTINE SULFATE [Suspect]
     Active Substance: VINCRISTINE SULFATE
     Indication: B-cell lymphoma
     Dosage: 2 MG TOTAL (DOSAGE TEXT: 2MG, 1X)
     Route: 042
     Dates: start: 20220718, end: 20220718
  4. VINCRISTINE SULFATE [Suspect]
     Active Substance: VINCRISTINE SULFATE
     Dosage: 1 MG TOTAL (DOSAGE TEXT: 1 MG, 1X)
     Route: 042
     Dates: start: 20220711, end: 20220711
  5. VINCRISTINE SULFATE [Suspect]
     Active Substance: VINCRISTINE SULFATE
     Dosage: 2 MG 2 TOTAL
     Route: 042
     Dates: start: 20220711, end: 20220718
  6. PREDNISONE [Suspect]
     Active Substance: PREDNISONE
     Indication: B-cell lymphoma
     Dosage: 80 MG, QD (ADDITIONAL INFORMATION ON DRUG (FREE TEXT): REPORTED AS CORTANCYL)
     Route: 048
     Dates: start: 20220719, end: 20220723
  7. METHYLPREDNISOLONE [Suspect]
     Active Substance: METHYLPREDNISOLONE
     Indication: B-cell lymphoma
     Dosage: 80 MG, QD (CUMULATIVE DOSE TO FIRST REACTION: 80 MG)
     Route: 042
     Dates: start: 20220718, end: 20220719
  8. VALACYCLOVIR HYDROCHLORIDE [Concomitant]
     Active Substance: VALACYCLOVIR HYDROCHLORIDE
     Indication: Antibiotic prophylaxis
     Dosage: UNK
  9. PRIMPERAN [Concomitant]
     Active Substance: METOCLOPRAMIDE HYDROCHLORIDE
     Dosage: 10 MG TOTAL (DOSAGE TEXT: 10MG, 1X)
     Dates: start: 20220711, end: 20220711
  10. DEXTROSE\POTASSIUM CHLORIDE\SODIUM CHLORIDE [Concomitant]
     Active Substance: DEXTROSE\POTASSIUM CHLORIDE\SODIUM CHLORIDE
     Dosage: UNK
  11. ACETAMINOPHEN [Concomitant]
     Active Substance: ACETAMINOPHEN
     Dosage: 1 G, TOTAL (DOSAGE TEXT: 1G, 1X)
     Dates: start: 20220719, end: 20220719
  12. BACTRIM [Concomitant]
     Active Substance: SULFAMETHOXAZOLE\TRIMETHOPRIM
     Dosage: UNK

REACTIONS (3)
  - Inappropriate antidiuretic hormone secretion [Recovered/Resolved]
  - Diarrhoea [Unknown]
  - Underdose [Unknown]

NARRATIVE: CASE EVENT DATE: 20220728
